FAERS Safety Report 5157790-2 (Version None)
Quarter: 2006Q4

REPORT INFORMATION
  Report Type: 
  Country: None (occurrence: None)
  Receive Date: 20061121
  Receipt Date: 20061121
  Transmission Date: 20070319
  Serious: Yes (Hospitalization)
  Sender: FDA-Public Use
  Company Number: None

PATIENT
  Age: 60 Year
  Sex: Male

DRUGS (7)
  1. LOTREL [Suspect]
  2. LOPRESSOR [Concomitant]
  3. GLUCOPHAGE [Concomitant]
  4. ALBUTEROL [Concomitant]
  5. ZANTAC [Concomitant]
  6. TRAZODONE HCL [Concomitant]
  7. HYDROCHLOROTHIAZIDE [Concomitant]

REACTIONS (2)
  - ANGIONEUROTIC OEDEMA [None]
  - DYSPHAGIA [None]
